FAERS Safety Report 10665416 (Version 1)
Quarter: 2014Q4

REPORT INFORMATION
  Report Type: Spontaneous
  Country: US (occurrence: US)
  Receive Date: 20141219
  Receipt Date: 20141219
  Transmission Date: 20150529
  Serious: No
  Sender: FDA-Public Use
  Company Number: US-GILEAD-2014-0127691

PATIENT
  Age: 29 Year
  Sex: Female

DRUGS (2)
  1. SOVALDI [Suspect]
     Active Substance: SOFOSBUVIR
     Indication: PRODUCT USED FOR UNKNOWN INDICATION
     Route: 065
  2. SIMEPREVIR [Concomitant]
     Active Substance: SIMEPREVIR

REACTIONS (5)
  - Pregnancy [Unknown]
  - Fatigue [Unknown]
  - Nausea [Unknown]
  - Alpha 1 foetoprotein increased [Unknown]
  - Menorrhagia [Unknown]
